FAERS Safety Report 24387906 (Version 1)
Quarter: 2024Q4

REPORT INFORMATION
  Report Type: Spontaneous
  Country: US (occurrence: US)
  Receive Date: 20241002
  Receipt Date: 20241002
  Transmission Date: 20250114
  Serious: No
  Sender: LEXICON PHARMACEUTICALS
  Company Number: US-LEX-000467

PATIENT
  Age: 50 Year
  Sex: Female

DRUGS (2)
  1. INPEFA [Suspect]
     Active Substance: SOTAGLIFLOZIN
     Indication: Product used for unknown indication
     Route: 065
     Dates: start: 20240403
  2. INPEFA [Suspect]
     Active Substance: SOTAGLIFLOZIN
     Indication: Product used for unknown indication
     Route: 065
     Dates: start: 202405, end: 20240630

REACTIONS (1)
  - Dyspnoea [Recovered/Resolved]

NARRATIVE: CASE EVENT DATE: 20240101
